FAERS Safety Report 23784571 (Version 1)
Quarter: 2024Q2

REPORT INFORMATION
  Report Type: Report from Study
  Country: US (occurrence: US)
  Receive Date: 20240425
  Receipt Date: 20240425
  Transmission Date: 20240716
  Serious: Yes (Death)
  Sender: FDA-Public Use
  Company Number: US-MIRATI-MT2024PM06465

PATIENT
  Sex: Female

DRUGS (3)
  1. KRAZATI [Suspect]
     Active Substance: ADAGRASIB
     Indication: Lung neoplasm malignant
     Dosage: 600 MG, BID
     Route: 048
     Dates: start: 20231012, end: 20231113
  2. KRAZATI [Suspect]
     Active Substance: ADAGRASIB
     Dosage: 200 MG QOD FOR 7 DAYS
     Route: 048
     Dates: start: 20240123
  3. KRAZATI [Suspect]
     Active Substance: ADAGRASIB
     Dosage: 600 MG, QD
     Route: 048
     Dates: start: 20240226, end: 202403

REACTIONS (2)
  - Death [Fatal]
  - Drug ineffective [Not Recovered/Not Resolved]

NARRATIVE: CASE EVENT DATE: 20240313
